FAERS Safety Report 10981520 (Version 2)
Quarter: 2015Q2

REPORT INFORMATION
  Report Type: Spontaneous
  Country: US (occurrence: US)
  Receive Date: 20150402
  Receipt Date: 20150525
  Transmission Date: 20150821
  Serious: No
  Sender: FDA-Public Use
  Company Number: US-JNJFOC-20140910095

PATIENT
  Age: 86 Year
  Sex: Female
  Weight: 54.43 kg

DRUGS (3)
  1. IMODIUM MULTI-SYMPTOM RELIEF [Suspect]
     Active Substance: DIMETHICONE\LOPERAMIDE HYDROCHLORIDE
     Indication: IRRITABLE BOWEL SYNDROME
     Route: 048
     Dates: start: 20140908
  2. TRAMADOL [Concomitant]
     Active Substance: TRAMADOL
     Indication: PAIN
     Route: 065
  3. IMODIUM MULTI-SYMPTOM RELIEF [Suspect]
     Active Substance: DIMETHICONE\LOPERAMIDE HYDROCHLORIDE
     Route: 048

REACTIONS (4)
  - Drug ineffective [Unknown]
  - Abdominal pain [Recovering/Resolving]
  - Nausea [Unknown]
  - Product use issue [Unknown]

NARRATIVE: CASE EVENT DATE: 20140908
